FAERS Safety Report 11243482 (Version 3)
Quarter: 2016Q2

REPORT INFORMATION
  Report Type: Spontaneous
  Country: JP (occurrence: JP)
  Receive Date: 20150707
  Receipt Date: 20160531
  Transmission Date: 20160815
  Serious: Yes (Death)
  Sender: FDA-Public Use
  Company Number: JP-SA-2015SA096766

PATIENT
  Sex: Male
  Weight: 54 kg

DRUGS (6)
  1. ONETAXOTERE [Suspect]
     Active Substance: DOCETAXEL
     Indication: LUNG NEOPLASM MALIGNANT
     Route: 041
     Dates: start: 20150623, end: 20150623
  2. ATELEC [Concomitant]
     Active Substance: CILNIDIPINE
     Indication: HYPERTENSION
     Route: 048
  3. ALOXI [Concomitant]
     Active Substance: PALONOSETRON HYDROCHLORIDE
     Indication: ANTIEMETIC SUPPORTIVE CARE
     Route: 042
     Dates: start: 20150623, end: 20150623
  4. DECADRON (DEXAMETHASONE SODIUM PHOSPHATE) [Concomitant]
     Active Substance: DEXAMETHASONE SODIUM PHOSPHATE
     Route: 042
     Dates: start: 20150623, end: 20150623
  5. MICARDIS [Concomitant]
     Active Substance: TELMISARTAN
     Route: 048
  6. SYMBICORT [Concomitant]
     Active Substance: BUDESONIDE\FORMOTEROL FUMARATE DIHYDRATE
     Indication: CHRONIC OBSTRUCTIVE PULMONARY DISEASE

REACTIONS (3)
  - Septic shock [Fatal]
  - White blood cell count decreased [Fatal]
  - Neutrophil count decreased [Fatal]

NARRATIVE: CASE EVENT DATE: 20150629
